FAERS Safety Report 20794321 (Version 8)
Quarter: 2023Q4

REPORT INFORMATION
  Report Type: Other
  Country: DE (occurrence: None)
  Receive Date: 20220506
  Receipt Date: 20231127
  Transmission Date: 20240110
  Serious: No
  Sender: FDA-Public Use
  Company Number: DE-ROCHE-3010938

PATIENT
  Age: 35 Year
  Sex: Female

DRUGS (19)
  1. OCRELIZUMAB [Suspect]
     Active Substance: OCRELIZUMAB
     Indication: Relapsing multiple sclerosis
     Route: 042
     Dates: start: 20220104
  2. OCRELIZUMAB [Suspect]
     Active Substance: OCRELIZUMAB
     Route: 042
     Dates: start: 20220705
  3. PREDNISOLONE [Suspect]
     Active Substance: PREDNISOLONE
     Indication: Prophylaxis
     Route: 042
     Dates: start: 20220120, end: 20220120
  4. PREDNISOLONE [Suspect]
     Active Substance: PREDNISOLONE
     Route: 042
     Dates: start: 20220104, end: 20220104
  5. PREDNISOLONE [Suspect]
     Active Substance: PREDNISOLONE
     Dosage: MOST RECENT DOSE PRIOR TO AE 05/JUL/2022
     Route: 042
     Dates: start: 20220705
  6. PREDNISOLONE [Suspect]
     Active Substance: PREDNISOLONE
     Route: 042
     Dates: start: 20230704, end: 20230704
  7. PREDNISOLONE [Suspect]
     Active Substance: PREDNISOLONE
     Indication: Prophylaxis
     Dosage: MOST RECENT DOSE PRIOR TO AE 04/JAN/2022
     Route: 042
     Dates: start: 20220104
  8. SARS-COV-2 VACCINE [Concomitant]
     Indication: Prophylaxis
     Dosage: DOSE: 0.3?DOSE FREQUENCY: OTHER
     Route: 030
     Dates: start: 20211118, end: 20211118
  9. CHOLECALCIFEROL [Concomitant]
     Active Substance: CHOLECALCIFEROL
     Indication: Prophylaxis
     Route: 048
     Dates: start: 20180405
  10. ETHINYL ESTRADIOL\LEVONORGESTREL [Concomitant]
     Active Substance: ETHINYL ESTRADIOL\LEVONORGESTREL
     Indication: Prophylaxis
     Dosage: 125/30?MCG
     Route: 048
     Dates: start: 202210
  11. PREDNISOLONE [Concomitant]
     Active Substance: PREDNISOLONE
     Dosage: DOSE FREQUENCY: ONCE
     Route: 042
     Dates: start: 20220104, end: 20220104
  12. EBASTINE [Concomitant]
     Active Substance: EBASTINE
     Dosage: IN THE MORNING AND IN THE EVENING FOR 3 DAYS
     Route: 048
     Dates: start: 20220103, end: 20220105
  13. EBASTINE [Concomitant]
     Active Substance: EBASTINE
     Dosage: IN THE MORNING AND IN THE EVENING FOR 3 DAYS
     Route: 048
     Dates: start: 20220119, end: 20220121
  14. EBASTINE [Concomitant]
     Active Substance: EBASTINE
     Route: 048
     Dates: start: 20220704, end: 20220706
  15. EBASTINE [Concomitant]
     Active Substance: EBASTINE
     Route: 048
     Dates: start: 20230703, end: 20230705
  16. PREDNISOLONE [Concomitant]
     Active Substance: PREDNISOLONE
     Dosage: DOSE FREQUENCY: ONCE
     Route: 042
     Dates: start: 20220120, end: 20220120
  17. PREDNISOLONE [Concomitant]
     Active Substance: PREDNISOLONE
     Dosage: DOSE FREQUENCY: ONCE
     Route: 042
     Dates: start: 20220705, end: 20220705
  18. PREDNISOLONE [Concomitant]
     Active Substance: PREDNISOLONE
     Dosage: DOSE FREQUENCY: ONCE
     Route: 042
     Dates: start: 20230104, end: 20230104
  19. PREDNISOLONE [Concomitant]
     Active Substance: PREDNISOLONE
     Dosage: DOSE FREQUENCY: ONCE
     Route: 042
     Dates: start: 20230704, end: 20230704

REACTIONS (4)
  - Upper respiratory tract infection [Recovered/Resolved]
  - Tachycardia [Recovered/Resolved]
  - COVID-19 [Recovered/Resolved]
  - C-reactive protein increased [Not Recovered/Not Resolved]

NARRATIVE: CASE EVENT DATE: 20220106
